FAERS Safety Report 8620199-0 (Version None)
Quarter: 2012Q3

REPORT INFORMATION
  Report Type: 
  Country: None (occurrence: None)
  Receive Date: 20120824
  Receipt Date: 20120822
  Transmission Date: 20120928
  Serious: Yes (Death, Other)
  Sender: FDA-Public Use
  Company Number: PHHY2012NL072603

PATIENT
  Age: 43 Year
  Sex: Female

DRUGS (2)
  1. MYCOPHENOLATE MEFETIL [Suspect]
     Indication: RENAL TRANSPLANT
     Dosage: 1000 MG, BID
  2. PREDNISONE TAB [Suspect]
     Dosage: 20 MG, QD

REACTIONS (7)
  - DEHYDRATION [None]
  - LYMPHOPROLIFERATIVE DISORDER [None]
  - EPSTEIN-BARR VIRUS INFECTION [None]
  - AMNESIA [None]
  - DECREASED APPETITE [None]
  - BRADYPHRENIA [None]
  - FATIGUE [None]
